FAERS Safety Report 10699846 (Version 2)
Quarter: 2014Q4

REPORT INFORMATION
  Report Type: Spontaneous
  Country: US (occurrence: US)
  Receive Date: 20141001
  Receipt Date: 20141001
  Transmission Date: 20150529
  Serious: Yes (Other)
  Sender: FDA-Public Use
  Company Number: US-APOTEX-2014AP004793

PATIENT
  Age: 15 Year
  Sex: Male

DRUGS (1)
  1. HALOPERIDOL. [Suspect]
     Active Substance: HALOPERIDOL
     Indication: AGITATION
     Dosage: 2 SEPERATE DOSES OF 5MG
     Route: 042

REACTIONS (2)
  - Motor dysfunction [Recovering/Resolving]
  - Cognitive disorder [Recovering/Resolving]
